FAERS Safety Report 6017429-0 (Version None)
Quarter: 2008Q4

REPORT INFORMATION
  Report Type: 
  Country: None (occurrence: None)
  Receive Date: 20081223
  Receipt Date: 20081208
  Transmission Date: 20090506
  Serious: Yes (Hospitalization, Other)
  Sender: FDA-Public Use
  Company Number: US-ROCHE-602047

PATIENT
  Age: 57 Year
  Sex: Male

DRUGS (2)
  1. RIBAVIRIN [Suspect]
     Route: 048
     Dates: start: 20061201
  2. PEG-INTERFERON ALFA 2B [Suspect]
     Route: 058
     Dates: start: 20061201

REACTIONS (5)
  - AUTONOMIC NERVOUS SYSTEM IMBALANCE [None]
  - DIARRHOEA [None]
  - HAEMOLYTIC ANAEMIA [None]
  - HYPOKALAEMIA [None]
  - OTOTOXICITY [None]
